FAERS Safety Report 7948730-9 (Version None)
Quarter: 2011Q4

REPORT INFORMATION
  Report Type: 
  Country: None (occurrence: None)
  Receive Date: 20111130
  Receipt Date: 20111124
  Transmission Date: 20120403
  Serious: Yes (Death)
  Sender: FDA-Public Use
  Company Number: JP-SANOFI-AVENTIS-2011SA077443

PATIENT
  Sex: Female

DRUGS (3)
  1. ANTINEOPLASTIC AGENTS [Concomitant]
  2. THERAPEUTIC RADIOPHARMACEUTICALS [Concomitant]
  3. DOCETAXEL [Suspect]
     Dosage: 80 MG/4 ML
     Route: 065
     Dates: start: 20111101

REACTIONS (2)
  - RESPIRATORY FAILURE [None]
  - INTERSTITIAL LUNG DISEASE [None]
